FAERS Safety Report 7324399-1 (Version None)
Quarter: 2011Q1

REPORT INFORMATION
  Report Type: 
  Country: None (occurrence: None)
  Receive Date: 20110301
  Receipt Date: 20110223
  Transmission Date: 20110831
  Serious: Yes (Other)
  Sender: FDA-Public Use
  Company Number: US-PFIZER INC-2011040764

PATIENT

DRUGS (4)
  1. VERAPAMIL HCL [Suspect]
     Indication: CARDIAC DISORDER
  2. VERAPAMIL HCL [Suspect]
     Indication: MITRAL VALVE PROLAPSE
  3. VERAPAMIL HCL [Suspect]
     Indication: CHEST DISCOMFORT
  4. VERAPAMIL HCL [Suspect]
     Indication: HEART RATE IRREGULAR
     Dosage: UNK

REACTIONS (1)
  - FLUSHING [None]
